FAERS Safety Report 22931255 (Version 2)
Quarter: 2023Q4

REPORT INFORMATION
  Report Type: Spontaneous
  Country: CL (occurrence: CL)
  Receive Date: 20230911
  Receipt Date: 20231019
  Transmission Date: 20240110
  Serious: Yes (Other)
  Sender: FDA-Public Use
  Company Number: CL-PFIZER INC-PV202300152811

PATIENT
  Age: 65 Year
  Sex: Female

DRUGS (4)
  1. NURTEC ODT [Suspect]
     Active Substance: RIMEGEPANT SULFATE
     Indication: Migraine
     Dosage: 75 MG, ALTERNATE DAY
     Dates: start: 20230801
  2. ANTALIN [Concomitant]
     Dosage: DAILY
     Dates: start: 20230203
  3. EUROGESIC ADULTO FORTE [Concomitant]
     Dosage: IN CASE OF CRISIS
  4. KEVAL [ELETRIPTAN HYDROBROMIDE] [Concomitant]
     Dosage: IN CASE OF CRISIS

REACTIONS (3)
  - Seizure [Recovered/Resolved]
  - Nausea [Recovered/Resolved]
  - Tremor [Recovered/Resolved]

NARRATIVE: CASE EVENT DATE: 20230101
